FAERS Safety Report 7831352-8 (Version None)
Quarter: 2011Q4

REPORT INFORMATION
  Report Type: 
  Country: None (occurrence: None)
  Receive Date: 20111021
  Receipt Date: 20111011
  Transmission Date: 20120403
  Serious: Yes (Hospitalization)
  Sender: FDA-Public Use
  Company Number: IT-ELI_LILLY_AND_COMPANY-IT201110002619

PATIENT
  Sex: Female

DRUGS (4)
  1. OXYCONTIN [Concomitant]
     Dosage: 10 MG, UNK
  2. LEDERFOLIN [Concomitant]
     Dosage: 7.5 MG, UNK
     Route: 048
  3. ALIMTA [Suspect]
     Indication: LUNG ADENOCARCINOMA METASTATIC
     Dosage: 800 MG, UNK
     Route: 042
     Dates: start: 20110712, end: 20110712
  4. DOBETIN [Concomitant]
     Dosage: 1000 UG, UNK

REACTIONS (1)
  - ACUTE MYOCARDIAL INFARCTION [None]
